FAERS Safety Report 19486958 (Version 2)
Quarter: 2021Q3

REPORT INFORMATION
  Report Type: Spontaneous
  Country: US (occurrence: US)
  Receive Date: 20210702
  Receipt Date: 20210806
  Transmission Date: 20211014
  Serious: No
  Sender: FDA-Public Use
  Company Number: NVSC2021US146250

PATIENT
  Age: 77 Year
  Sex: Female

DRUGS (3)
  1. VOLTAREN [Suspect]
     Active Substance: DICLOFENAC SODIUM
     Indication: ARTHRITIS
     Dosage: UNK
     Route: 065
     Dates: start: 20210623
  2. ASPIRIN. [Interacting]
     Active Substance: ASPIRIN
     Indication: PRODUCT USE IN UNAPPROVED INDICATION
     Dosage: 81 MG
     Route: 065
  3. ASPIRIN. [Interacting]
     Active Substance: ASPIRIN
     Dosage: 81 MG
     Route: 065

REACTIONS (4)
  - Product use issue [Unknown]
  - Drug ineffective [Unknown]
  - Circumstance or information capable of leading to medication error [Unknown]
  - Labelled drug-drug interaction medication error [Recovered/Resolved]

NARRATIVE: CASE EVENT DATE: 20210623
